FAERS Safety Report 4798019-4 (Version None)
Quarter: 2005Q3

REPORT INFORMATION
  Report Type: 
  Country: None (occurrence: None)
  Receive Date: 20050929
  Receipt Date: 20050824
  Transmission Date: 20060218
  Serious: No
  Sender: FDA-Public Use
  Company Number: 05P-163-0309134

PATIENT
  Age: 79 Year
  Sex: Female
  Weight: 61.2356 kg

DRUGS (3)
  1. HUMIRA [Suspect]
     Indication: RHEUMATOID ARTHRITIS
     Dosage: 40 MG, 1 IN  2 WK, SUBCUTANEOUS
     Route: 058
     Dates: start: 20050706
  2. PREDNISONE [Concomitant]
  3. ESTROGENS CONJUGATED [Concomitant]

REACTIONS (3)
  - FEELING HOT [None]
  - TOOTH ABSCESS [None]
  - VOMITING [None]
